FAERS Safety Report 9808664 (Version 1)
Quarter: 2014Q1

REPORT INFORMATION
  Report Type: Spontaneous
  Country: FR (occurrence: FR)
  Receive Date: 20140110
  Receipt Date: 20140110
  Transmission Date: 20141002
  Serious: Yes (Death)
  Sender: FDA-Public Use
  Company Number: FR-BRISTOL-MYERS SQUIBB COMPANY-19987551

PATIENT
  Age: 84 Year
  Sex: Female

DRUGS (9)
  1. GLUCOPHAGE [Suspect]
     Route: 048
  2. SINEMET [Suspect]
     Route: 048
  3. PREVISCAN [Suspect]
     Route: 048
  4. CRESTOR [Suspect]
     Route: 048
  5. JANUVIA [Suspect]
     Route: 048
  6. TENORMIN [Suspect]
     Route: 048
  7. TRIATEC [Suspect]
     Route: 048
  8. MOTILIUM [Suspect]
     Route: 048
  9. CORDARONE [Suspect]
     Route: 048

REACTIONS (1)
  - Subdural haematoma [Fatal]
